FAERS Safety Report 5356070-X (Version None)
Quarter: 2007Q2

REPORT INFORMATION
  Report Type: 
  Country: None (occurrence: None)
  Receive Date: 20070613
  Receipt Date: 20070531
  Transmission Date: 20071010
  Serious: Yes (Other)
  Sender: FDA-Public Use
  Company Number: US-SHR-US-2006-038192

PATIENT
  Age: 36 Year
  Sex: Male

DRUGS (12)
  1. MAGNEVIST [Suspect]
     Dosage: 40 ML, 1 DOSE
     Route: 042
     Dates: start: 20051014, end: 20051014
  2. MAGNEVIST [Suspect]
     Dosage: 60 ML, 1 DOSE
     Route: 042
     Dates: start: 20070118, end: 20070118
  3. CYCLOSPORINE [Concomitant]
  4. BUSULFEX [Concomitant]
     Indication: MULTIPLE MYELOMA
     Dates: start: 20050715
  5. EPOETIN NOS [Concomitant]
     Dosage: 40000 UNITS, 1X/WEEK
  6. ULTRAVIST 370 [Concomitant]
     Dosage: UNK, 1 DOSE
     Dates: start: 20050921, end: 20050921
  7. ULTRAVIST 300 [Concomitant]
     Dosage: 100 ML, 2 DOSES
     Route: 042
     Dates: start: 20051012, end: 20051012
  8. TRIAMCINOLONE DIACETATE [Concomitant]
  9. CALCIUM ACETATE [Concomitant]
  10. SEVELAMER [Concomitant]
  11. ACYCLOVIR [Concomitant]
  12. PANTOPRAZOLE SODIUM [Concomitant]

REACTIONS (1)
  - NEPHROGENIC FIBROSING DERMOPATHY [None]
